FAERS Safety Report 16596412 (Version 1)
Quarter: 2019Q3

REPORT INFORMATION
  Report Type: Spontaneous
  Country: US (occurrence: US)
  Receive Date: 20190718
  Receipt Date: 20190718
  Transmission Date: 20191004
  Serious: Yes (Other)
  Sender: FDA-Public Use
  Company Number: None

PATIENT
  Age: 24 Year
  Sex: Male
  Weight: 82.8 kg

DRUGS (9)
  1. SENNA LAXATIVE [Concomitant]
     Active Substance: SENNOSIDES
  2. SUCRALFATE. [Concomitant]
     Active Substance: SUCRALFATE
  3. LORAZEPAM. [Concomitant]
     Active Substance: LORAZEPAM
  4. ACETAMINOPHEN ES [Concomitant]
  5. CLOTRIMAZOLE. [Concomitant]
     Active Substance: CLOTRIMAZOLE
  6. TEMOZOLOMIDE. [Suspect]
     Active Substance: TEMOZOLOMIDE
     Indication: MALIGNANT CONNECTIVE TISSUE NEOPLASM
     Route: 048
     Dates: start: 20190613, end: 20190718
  7. PROCHLORPERAZINE. [Concomitant]
     Active Substance: PROCHLORPERAZINE
  8. WARFARIN [Concomitant]
     Active Substance: WARFARIN
  9. HYDROMORPHONE [Concomitant]
     Active Substance: HYDROMORPHONE

REACTIONS (1)
  - Drug intolerance [None]

NARRATIVE: CASE EVENT DATE: 20190718
